FAERS Safety Report 5066762-8 (Version None)
Quarter: 2006Q3

REPORT INFORMATION
  Report Type: 
  Country: None (occurrence: None)
  Receive Date: 20060801
  Receipt Date: 20060419
  Transmission Date: 20061208
  Serious: Yes (Other)
  Sender: FDA-Public Use
  Company Number: DE-ROCHE-447007

PATIENT
  Age: 45 Year
  Sex: Male
  Weight: 80 kg

DRUGS (4)
  1. PEGASYS [Suspect]
     Indication: HEPATITIS C
     Route: 058
     Dates: start: 20051206
  2. COPEGUS [Suspect]
     Indication: HEPATITIS C
     Route: 065
     Dates: start: 20051206
  3. LEVOTHYROXINE SODIUM [Concomitant]
     Dosage: DRUG REPORTED AS L-THYROX.
  4. OMEPRAZOLE [Concomitant]
     Indication: DUODENITIS

REACTIONS (1)
  - GRAND MAL CONVULSION [None]
